FAERS Safety Report 15974753 (Version 2)
Quarter: 2019Q2

REPORT INFORMATION
  Report Type: Spontaneous
  Country: ES (occurrence: ES)
  Receive Date: 20190218
  Receipt Date: 20190405
  Transmission Date: 20190711
  Serious: Yes (Hospitalization, Other)
  Sender: FDA-Public Use
  Company Number: ES-ACCORD-106900

PATIENT
  Age: 53 Year
  Sex: Female

DRUGS (2)
  1. ADALIMUMAB [Suspect]
     Active Substance: ADALIMUMAB
     Indication: CROHN^S DISEASE
  2. METHOTREXATE. [Suspect]
     Active Substance: METHOTREXATE
     Indication: CROHN^S DISEASE

REACTIONS (7)
  - Eosinophilia [Unknown]
  - Thrombosis [Unknown]
  - Pancytopenia [Recovered/Resolved]
  - Weight decreased [Unknown]
  - Bone marrow failure [Unknown]
  - Off label use [Unknown]
  - Skin necrosis [Unknown]
